FAERS Safety Report 22018510 (Version 1)
Quarter: 2023Q1

REPORT INFORMATION
  Report Type: Spontaneous
  Country: US (occurrence: US)
  Receive Date: 20230222
  Receipt Date: 20230222
  Transmission Date: 20230417
  Serious: No
  Sender: FDA-Public Use
  Company Number: US-ViiV Healthcare Limited-92042

PATIENT
  Age: 71 Year
  Sex: Male

DRUGS (2)
  1. RILPIVIRINE [Suspect]
     Active Substance: RILPIVIRINE
     Indication: Product used for unknown indication
     Dosage: UNK, 600MG/900MG/3ML
     Route: 065
     Dates: start: 20220909
  2. CABOTEGRAVIR [Suspect]
     Active Substance: CABOTEGRAVIR
     Indication: Product used for unknown indication
     Dosage: UNK, 600MG/900MG/3ML
     Route: 065
     Dates: start: 20220909

REACTIONS (5)
  - Dysuria [Unknown]
  - Hypoaesthesia [Unknown]
  - Bone pain [Unknown]
  - Pain [Unknown]
  - Injection site pain [Unknown]
